FAERS Safety Report 9277250 (Version 1)
Quarter: 2013Q2

REPORT INFORMATION
  Report Type: Spontaneous
  Country: US (occurrence: US)
  Receive Date: 20130508
  Receipt Date: 20130508
  Transmission Date: 20140414
  Serious: Yes (Other)
  Sender: FDA-Public Use
  Company Number: US-AMGEN-USASP2013031853

PATIENT
  Age: 56 Year
  Sex: Female

DRUGS (25)
  1. ENBREL [Suspect]
     Indication: RHEUMATOID ARTHRITIS
     Dosage: UNK
  2. SULFASALAZINE [Suspect]
  3. METHOTREXATE [Suspect]
     Dosage: 20 MG, QWK, TAKE EIGHT TABLETS BY MOUTH ONCE A WEEK
     Route: 048
  4. METHOTREXATE [Suspect]
     Dosage: 25 MG, QWK
  5. ORENCIA [Suspect]
     Dosage: UNK
  6. RITUXAN [Suspect]
     Dosage: UNK
  7. ACTEMRA [Suspect]
     Dosage: UNK
  8. HCQ [Suspect]
     Dosage: UNK
  9. PREDNISONE [Concomitant]
     Dosage: 25 MG, QD
  10. PRILOSEC                           /00661201/ [Concomitant]
     Dosage: 40 MG, QD
     Route: 048
  11. HYDROXYCHLOROQUINE SULFATE [Concomitant]
     Dosage: 200 MG, BID
     Route: 048
  12. CLOTRIMAZOLE AND BETAMETHASONE [Concomitant]
     Dosage: 1-0.05 %, EXTERNAL LOTION
  13. OXYCODONE / ACETAMINOPHEN [Concomitant]
     Dosage: 5-325 MG
     Route: 048
  14. GLUCOSAMINE [Concomitant]
     Dosage: 1500 MG, QD
  15. ESTRADIOL [Concomitant]
     Dosage: 0.5 MG, QD
     Route: 048
  16. CHONDROITIN [Concomitant]
     Dosage: 1250 MG, QD
  17. METOPROLOL TARTRATE [Concomitant]
     Dosage: 25 MG, BID
     Route: 048
  18. MULTIVITAMIN                       /00097801/ [Concomitant]
     Dosage: UNK
  19. VITAMIN D3 [Concomitant]
     Dosage: 2000 UNIT, UNK
     Route: 048
  20. ACIDOPHILUS/PECTIN [Concomitant]
     Dosage: UNK
     Route: 048
  21. FOLIC ACID [Concomitant]
     Dosage: 1 MG, QD
     Route: 048
  22. LEUCOVORIN CALCIUM                 /00566702/ [Concomitant]
     Dosage: 5 MG, QWK, TAKE ONE TABLET WEEKLY ONE DAY AFTER METHOTREXATE
     Route: 048
  23. CELEBREX [Concomitant]
     Dosage: UNK
  24. REMICADE [Concomitant]
     Dosage: UNK
  25. HUMIRA [Concomitant]
     Dosage: UNK

REACTIONS (17)
  - Diabetes mellitus [Unknown]
  - Oedema [Unknown]
  - Rash [Unknown]
  - Alopecia [Unknown]
  - Abdominal discomfort [Unknown]
  - Arthritis [Unknown]
  - Musculoskeletal stiffness [Unknown]
  - Arthralgia [Unknown]
  - Joint swelling [Unknown]
  - Laceration [Unknown]
  - Liver function test abnormal [Unknown]
  - Abdominal distension [Unknown]
  - Drug ineffective [Unknown]
  - Hypertension [Unknown]
  - Back pain [Unknown]
  - Weight decreased [Unknown]
  - Arthralgia [None]
